FAERS Safety Report 6710025-9 (Version None)
Quarter: 2010Q2

REPORT INFORMATION
  Report Type: 
  Country: None (occurrence: None)
  Receive Date: 20100430
  Receipt Date: 20100420
  Transmission Date: 20101027
  Serious: Yes (Hospitalization)
  Sender: FDA-Public Use
  Company Number: WAES 1004USA01476

PATIENT
  Age: 71 Year
  Sex: Female

DRUGS (3)
  1. FOSAMAX [Suspect]
     Indication: OSTEOPOROSIS
     Dosage: 35 MG/WKY PO
     Route: 048
     Dates: start: 20090609, end: 20100406
  2. CALCIUM CARBONATE [Suspect]
     Indication: OSTEOPOROSIS
     Dosage: 2 TAB/DAILY PO
     Route: 048
     Dates: start: 20090513, end: 20100411
  3. PLACEBO (UNSPECIFIED) [Suspect]
     Indication: OSTEOPOROSIS
     Dosage: 100 ML/Q4W IV
     Route: 042
     Dates: start: 20090608, end: 20100315

REACTIONS (4)
  - ASTIGMATISM [None]
  - HYPERMETROPIA [None]
  - PRESBYOPIA [None]
  - RETINAL DETACHMENT [None]
